FAERS Safety Report 4772232-4 (Version None)
Quarter: 2005Q3

REPORT INFORMATION
  Report Type: 
  Country: None (occurrence: None)
  Receive Date: 20050919
  Receipt Date: 20050307
  Transmission Date: 20060218
  Serious: No
  Sender: FDA-Public Use
  Company Number: US-BRISTOL-MYERS SQUIBB COMPANY-12889283

PATIENT
  Age: 44 Year
  Sex: Male
  Weight: 75 kg

DRUGS (2)
  1. DEFINITY [Suspect]
     Indication: DYSPNOEA
     Route: 042
     Dates: start: 20050301, end: 20050301
  2. DEFINITY [Suspect]
     Indication: STRESS ECHOCARDIOGRAM
     Route: 042
     Dates: start: 20050301, end: 20050301

REACTIONS (3)
  - DISCOMFORT [None]
  - FLUSHING [None]
  - URTICARIA [None]
